FAERS Safety Report 7052008-8 (Version None)
Quarter: 2010Q4

REPORT INFORMATION
  Report Type: 
  Country: None (occurrence: None)
  Receive Date: 20101019
  Receipt Date: 20101013
  Transmission Date: 20110411
  Serious: Yes (Other)
  Sender: FDA-Public Use
  Company Number: BR-SANOFI-AVENTIS-2010SA062752

PATIENT
  Sex: Female
  Weight: 57 kg

DRUGS (8)
  1. LANTUS [Suspect]
     Route: 058
     Dates: start: 20000101
  2. AUTOPEN 24 [Suspect]
  3. ACARBOSE [Concomitant]
     Route: 048
     Dates: start: 20000101
  4. ALL OTHER THERAPEUTIC PRODUCTS [Concomitant]
     Route: 048
     Dates: start: 20050101
  5. SIMVASTATIN [Concomitant]
     Route: 048
     Dates: start: 20060101
  6. RIVOTRIL [Concomitant]
     Indication: INSOMNIA
     Route: 048
  7. MIRTAZAPINE [Concomitant]
     Route: 048
  8. DICLOFENAC SODIUM [Concomitant]
     Route: 048

REACTIONS (6)
  - CATARACT [None]
  - CONDITION AGGRAVATED [None]
  - DIABETIC RETINOPATHY [None]
  - EYE DISORDER [None]
  - HYPOGLYCAEMIA [None]
  - RETINAL HAEMORRHAGE [None]
